FAERS Safety Report 21870276 (Version 1)
Quarter: 2023Q1

REPORT INFORMATION
  Report Type: Spontaneous
  Country: DZ (occurrence: DZ)
  Receive Date: 20230117
  Receipt Date: 20230117
  Transmission Date: 20230417
  Serious: Yes (Other)
  Sender: FDA-Public Use
  Company Number: DZ-002147023-NVSC2023DZ005695

PATIENT
  Age: 25 Year
  Sex: Female

DRUGS (3)
  1. METHOTREXATE [Suspect]
     Active Substance: METHOTREXATE
     Indication: Acute lymphocytic leukaemia
     Dosage: CUMULATIVE DOSE OF 906 MG/M2 (1.315 G) OVER 43 HOURS
     Route: 065
  2. LEUCOVORIN [Concomitant]
     Active Substance: LEUCOVORIN
     Indication: Product used for unknown indication
     Dosage: RESCUE AT 4H
     Route: 065
  3. LEUCOVORIN [Concomitant]
     Active Substance: LEUCOVORIN
     Dosage: 800 MG, QD (AT 96H)
     Route: 065

REACTIONS (7)
  - Renal failure [Recovering/Resolving]
  - Liver injury [Recovering/Resolving]
  - Spinal cord disorder [Unknown]
  - Aplasia [Unknown]
  - Mouth ulceration [Unknown]
  - Toxicity to various agents [Unknown]
  - Drug clearance decreased [Unknown]
